FAERS Safety Report 5009884-X (Version None)
Quarter: 2006Q2

REPORT INFORMATION
  Report Type: 
  Country: None (occurrence: None)
  Receive Date: 20060524
  Receipt Date: 20060314
  Transmission Date: 20061013
  Serious: Yes (Other)
  Sender: FDA-Public Use
  Company Number: PHEH2006US03456

PATIENT
  Age: 58 Year
  Sex: Male

DRUGS (3)
  1. ZOMETA [Suspect]
     Indication: METASTASES TO BONE
     Dosage: 4 MG, MONTHLY
     Dates: start: 20030127, end: 20050106
  2. TAXOTERE [Concomitant]
     Dosage: 50 MG/WK
     Dates: start: 20030101, end: 20050101
  3. EMCYT [Concomitant]
     Dosage: 140 MG/D X 3/WK
     Dates: start: 20030101, end: 20050101

REACTIONS (17)
  - ANAEMIA [None]
  - BONE DEBRIDEMENT [None]
  - BONE DISORDER [None]
  - DIALYSIS [None]
  - EATING DISORDER [None]
  - ERYTHEMA [None]
  - LOCAL SWELLING [None]
  - LYMPH NODE PAIN [None]
  - LYMPHADENOPATHY [None]
  - OSTEOMYELITIS [None]
  - OSTEONECROSIS [None]
  - PAIN [None]
  - PURULENT DISCHARGE [None]
  - RENAL FAILURE CHRONIC [None]
  - SOFT TISSUE INFECTION [None]
  - STAPHYLOCOCCAL INFECTION [None]
  - TOOTH EXTRACTION [None]
